FAERS Safety Report 16078376 (Version 19)
Quarter: 2020Q3

REPORT INFORMATION
  Report Type: Report from Study
  Country: CA (occurrence: CA)
  Receive Date: 20190315
  Receipt Date: 20200918
  Transmission Date: 20201102
  Serious: Yes (Hospitalization)
  Sender: FDA-Public Use
  Company Number: PHHY2019CA056516

PATIENT
  Age: 73 Year
  Sex: Male

DRUGS (9)
  1. SANDOSTATIN LAR DEPOT [Suspect]
     Active Substance: OCTREOTIDE ACETATE
     Dosage: 40 MG, QMO
     Route: 030
     Dates: start: 20111020
  2. LOPERAMIDE [Concomitant]
     Active Substance: LOPERAMIDE
     Indication: PRODUCT USED FOR UNKNOWN INDICATION
     Dosage: 2 MG (7HAM11AM/10PM)
     Route: 065
  3. SANDOSTATIN LAR DEPOT [Suspect]
     Active Substance: OCTREOTIDE ACETATE
     Indication: SHORT-BOWEL SYNDROME
     Dosage: 40 MG, Q4W
     Route: 030
     Dates: start: 20110913
  4. LIPID [Concomitant]
     Indication: PRODUCT USED FOR UNKNOWN INDICATION
     Dosage: AT 9 PM
     Route: 065
  5. SANDOSTATIN [Suspect]
     Active Substance: OCTREOTIDE ACETATE
     Indication: SHORT-BOWEL SYNDROME
     Dosage: TID (FOR 2 WEEKS)
     Route: 058
     Dates: start: 2011, end: 2011
  6. CORTEF [Concomitant]
     Active Substance: HYDROCORTISONE
     Indication: PRODUCT USED FOR UNKNOWN INDICATION
     Dosage: UNK (Q PM)
     Route: 065
  7. SANDOSTATIN LAR DEPOT [Suspect]
     Active Substance: OCTREOTIDE ACETATE
  8. CORTEF [Concomitant]
     Active Substance: HYDROCORTISONE
     Indication: PRODUCT USED FOR UNKNOWN INDICATION
     Dosage: Q AM
     Route: 065
  9. GRAVOL [Concomitant]
     Active Substance: DIMENHYDRINATE
     Indication: PRODUCT USED FOR UNKNOWN INDICATION
     Dosage: UNK (25?50 UNIT) (DOSE 3)
     Route: 048

REACTIONS (13)
  - Pneumonia [Recovering/Resolving]
  - Gait inability [Unknown]
  - Fall [Unknown]
  - Balance disorder [Unknown]
  - General physical health deterioration [Not Recovered/Not Resolved]
  - Pleural effusion [Unknown]
  - Product use in unapproved indication [Unknown]
  - Asthenia [Unknown]
  - Red blood cell count decreased [Unknown]
  - Peripheral swelling [Unknown]
  - Viral infection [Unknown]
  - Vomiting [Unknown]
  - Pain in extremity [Unknown]

NARRATIVE: CASE EVENT DATE: 2019
